FAERS Safety Report 24350939 (Version 1)
Quarter: 2024Q3

REPORT INFORMATION
  Report Type: Report from Study
  Country: DE (occurrence: DE)
  Receive Date: 20240923
  Receipt Date: 20240923
  Transmission Date: 20241016
  Serious: No
  Sender: ROCHE
  Company Number: DE-ROCHE-3531281

PATIENT
  Age: 59 Year
  Sex: Male
  Weight: 88.0 kg

DRUGS (4)
  1. TRASTUZUMAB [Suspect]
     Active Substance: TRASTUZUMAB
     Indication: Neoplasm malignant
     Dosage: ON 03/JAN/2024, RECEIVED MOST RECENT DOSE.
     Route: 041
     Dates: start: 20230807
  2. OXALIPLATIN [Suspect]
     Active Substance: OXALIPLATIN
     Indication: Neoplasm malignant
     Dosage: ON 03/JAN/2024, RECEIVED MOST RECENT DOSE.
     Route: 041
     Dates: start: 20230807
  3. LEUCOVORIN CALCIUM [Suspect]
     Active Substance: LEUCOVORIN CALCIUM
     Indication: Neoplasm malignant
     Dosage: ON 03/JAN/2024, RECEIVED MOST RECENT DOSE.
     Route: 041
     Dates: start: 20230807
  4. FLUOROURACIL [Suspect]
     Active Substance: FLUOROURACIL
     Indication: Neoplasm malignant
     Dosage: ON 03/JAN/2024, RECEIVED MOST RECENT DOSE.
     Route: 041
     Dates: start: 20230807

REACTIONS (1)
  - Hypersensitivity [Recovered/Resolved]

NARRATIVE: CASE EVENT DATE: 20240103
